FAERS Safety Report 12506093 (Version 1)
Quarter: 2016Q2

REPORT INFORMATION
  Report Type: Spontaneous
  Country: US (occurrence: US)
  Receive Date: 20160628
  Receipt Date: 20160628
  Transmission Date: 20160815
  Serious: No
  Sender: FDA-Public Use
  Company Number: US-PURDUE-USA-2015-0124982

PATIENT
  Sex: Male

DRUGS (1)
  1. DRONABINOL CAPSULES [Suspect]
     Active Substance: DRONABINOL
     Indication: NAUSEA
     Dosage: 1 DF, BID
     Route: 048

REACTIONS (1)
  - Drug ineffective [Unknown]
